FAERS Safety Report 8859595 (Version 1)
Quarter: 2012Q4

REPORT INFORMATION
  Report Type: 
  Country: US (occurrence: US)
  Receive Date: 20121025
  Receipt Date: 20121025
  Transmission Date: 20130627
  Serious: Yes (Hospitalization)
  Sender: FDA-Public Use
  Company Number: US-SANOFI-AVENTIS-2012SA076637

PATIENT
  Age: 37 Year
  Sex: Male

DRUGS (2)
  1. LANTUS SOLOSTAR [Suspect]
     Indication: TYPE II DIABETES MELLITUS
     Dosage: 30 units in the morning and 26 units in the evening.
     Route: 058
     Dates: start: 201205
  2. SOLOSTAR [Suspect]
     Indication: TYPE II DIABETES MELLITUS
     Dates: start: 201205

REACTIONS (1)
  - Urinary tract disorder [Recovering/Resolving]
